FAERS Safety Report 10706996 (Version 1)
Quarter: 2015Q1

REPORT INFORMATION
  Report Type: Spontaneous
  Country: US (occurrence: None)
  Receive Date: 20150112
  Receipt Date: 20150112
  Transmission Date: 20150721
  Serious: Yes (Hospitalization)
  Sender: FDA-Public Use
  Company Number: None

PATIENT
  Age: 67 Year
  Sex: Male
  Weight: 119.3 kg

DRUGS (10)
  1. KEFLEX [Suspect]
     Active Substance: CEPHALEXIN
     Indication: INFECTION
     Route: 048
     Dates: start: 20150105, end: 20150108
  2. WARFARIN [Concomitant]
     Active Substance: WARFARIN
  3. CEPHALEXIN. [Concomitant]
     Active Substance: CEPHALEXIN
  4. ATORVASTATIN [Concomitant]
     Active Substance: ATORVASTATIN
  5. KEFLEX [Suspect]
     Active Substance: CEPHALEXIN
     Route: 048
     Dates: start: 20150105, end: 20150108
  6. OMEPRAZOLE. [Concomitant]
     Active Substance: OMEPRAZOLE
  7. COREG [Concomitant]
     Active Substance: CARVEDILOL
  8. CARTIA XT [Concomitant]
     Active Substance: DILTIAZEM HYDROCHLORIDE
  9. MAGNESIUM OXIDE. [Concomitant]
     Active Substance: MAGNESIUM OXIDE
  10. FLUOXETINE [Concomitant]
     Active Substance: FLUOXETINE\FLUOXETINE HYDROCHLORIDE

REACTIONS (6)
  - Rash generalised [None]
  - Tachycardia [None]
  - Atrial fibrillation [None]
  - Dyspnoea [None]
  - Discomfort [None]
  - Leukocytosis [None]

NARRATIVE: CASE EVENT DATE: 20150108
